FAERS Safety Report 16078775 (Version 2)
Quarter: 2020Q1

REPORT INFORMATION
  Report Type: Spontaneous
  Country: CA (occurrence: CA)
  Receive Date: 20190315
  Receipt Date: 20200213
  Transmission Date: 20200409
  Serious: Yes (Life-Threatening)
  Sender: FDA-Public Use
  Company Number: CA-AUROBINDO-AUR-APL-2019-013520

PATIENT
  Age: 66 Year
  Sex: Female
  Weight: 54 kg

DRUGS (19)
  1. ABILIFY [Suspect]
     Active Substance: ARIPIPRAZOLE
     Indication: ANXIETY
     Dosage: UNK
     Route: 065
  2. VALPROATE SEMISODIUM [Suspect]
     Active Substance: DIVALPROEX SODIUM
     Indication: DEPRESSION
     Dosage: UNK
     Route: 065
  3. EPIVAL [Suspect]
     Active Substance: DIVALPROEX SODIUM
     Indication: ANXIETY
  4. EPIVAL [Suspect]
     Active Substance: DIVALPROEX SODIUM
     Indication: ANXIETY
  5. VALPROATE SODIUM. [Suspect]
     Active Substance: VALPROATE SODIUM
     Indication: DEPRESSION
     Dosage: UNK
     Route: 065
  6. RISPERDAL [Suspect]
     Active Substance: RISPERIDONE
     Indication: DEPRESSION
     Dosage: UNK
     Route: 065
  7. VALPROATE SODIUM. [Suspect]
     Active Substance: VALPROATE SODIUM
     Indication: DEPRESSION
     Dosage: UNK
     Route: 065
  8. VALPROATE SODIUM. [Suspect]
     Active Substance: VALPROATE SODIUM
     Indication: ANXIETY
  9. VALPROATE SEMISODIUM [Suspect]
     Active Substance: DIVALPROEX SODIUM
     Indication: ANXIETY
  10. ABILIFY [Suspect]
     Active Substance: ARIPIPRAZOLE
     Indication: DEPRESSION
     Dosage: UNK
     Route: 065
  11. RISPERDAL [Suspect]
     Active Substance: RISPERIDONE
     Indication: DEPRESSION
     Dosage: UNK
     Route: 065
  12. VALPROATE SODIUM. [Suspect]
     Active Substance: VALPROATE SODIUM
     Indication: ANXIETY
  13. EPIVAL [Suspect]
     Active Substance: DIVALPROEX SODIUM
     Indication: DEPRESSION
     Dosage: UNK
     Route: 065
  14. RISPERDAL [Suspect]
     Active Substance: RISPERIDONE
     Indication: ANXIETY
  15. VALPROATE SEMISODIUM [Suspect]
     Active Substance: DIVALPROEX SODIUM
     Indication: ANXIETY
  16. CITALOPRAM [Suspect]
     Active Substance: CITALOPRAM HYDROBROMIDE
     Indication: PRODUCT USED FOR UNKNOWN INDICATION
     Dosage: UNK
     Route: 065
  17. EPIVAL [Suspect]
     Active Substance: DIVALPROEX SODIUM
     Indication: DEPRESSION
     Dosage: UNK
     Route: 065
  18. RISPERDAL [Suspect]
     Active Substance: RISPERIDONE
     Indication: ANXIETY
  19. VALPROATE SEMISODIUM [Suspect]
     Active Substance: DIVALPROEX SODIUM
     Indication: DEPRESSION
     Dosage: UNK
     Route: 065

REACTIONS (6)
  - Hypersomnia [Unknown]
  - Drug interaction [Unknown]
  - Weight increased [Unknown]
  - Alopecia [Unknown]
  - Product use in unapproved indication [Unknown]
  - Off label use [Unknown]
